FAERS Safety Report 4614114-4 (Version None)
Quarter: 2005Q1

REPORT INFORMATION
  Report Type: 
  Country: None (occurrence: None)
  Receive Date: 20050315
  Receipt Date: 20050303
  Transmission Date: 20050727
  Serious: Yes (Other)
  Sender: FDA-Public Use
  Company Number: 2005040292

PATIENT
  Sex: Male
  Weight: 76.2043 kg

DRUGS (3)
  1. CELEBREX [Suspect]
     Indication: ARTHRITIS
     Dosage: SEE IMAGE
     Route: 048
  2. CELEBREX [Suspect]
     Indication: PAIN IN EXTREMITY
     Dosage: SEE IMAGE
     Route: 048
  3. NORVASC [Concomitant]

REACTIONS (7)
  - ABDOMINAL PAIN UPPER [None]
  - ARTHRITIS [None]
  - CONDITION AGGRAVATED [None]
  - DYSPEPSIA [None]
  - ENDOSCOPY ABNORMAL [None]
  - ORAL INTAKE REDUCED [None]
  - POLYPECTOMY [None]
